FAERS Safety Report 7451998-9 (Version None)
Quarter: 2011Q2

REPORT INFORMATION
  Report Type: 
  Country: None (occurrence: None)
  Receive Date: 20110502
  Receipt Date: 20110421
  Transmission Date: 20111010
  Serious: Yes (Other)
  Sender: FDA-Public Use
  Company Number: GXKR2010GB10627

PATIENT
  Age: 85 Year
  Sex: Female

DRUGS (6)
  1. ASPIRIN [Concomitant]
  2. RAMIPRIL [Concomitant]
  3. BENDROFLUMETHIAZIDE [Concomitant]
  4. OMEPRAZOLE [Suspect]
     Route: 065
  5. ISOSORBIDE MONONITRATE [Concomitant]
  6. MELOXICAM [Concomitant]
     Indication: OSTEOARTHRITIS

REACTIONS (2)
  - EXFOLIATIVE RASH [None]
  - CUTANEOUS LUPUS ERYTHEMATOSUS [None]
